FAERS Safety Report 6472792-1 (Version None)
Quarter: 2009Q4

REPORT INFORMATION
  Report Type: 
  Country: None (occurrence: None)
  Receive Date: 20091201
  Receipt Date: 20091117
  Transmission Date: 20100525
  Serious: Yes (Other)
  Sender: FDA-Public Use
  Company Number: 2009AP004625

PATIENT
  Age: 35 Year
  Sex: Female

DRUGS (1)
  1. TOPIRAMATE [Suspect]
     Indication: MIGRAINE PROPHYLAXIS
     Dosage: 25 MG; QD; 50 MG; QD

REACTIONS (4)
  - CHOROIDAL EFFUSION [None]
  - FLAT ANTERIOR CHAMBER OF EYE [None]
  - MYOPIA [None]
  - VISION BLURRED [None]
